FAERS Safety Report 4717658-X (Version None)
Quarter: 2005Q3

REPORT INFORMATION
  Report Type: 
  Country: None (occurrence: None)
  Receive Date: 20050713
  Receipt Date: 20050513
  Transmission Date: 20060218
  Serious: Yes (Hospitalization)
  Sender: FDA-Public Use
  Company Number: 404926

PATIENT
  Age: 46 Year
  Sex: Female
  Weight: 47.6 kg

DRUGS (5)
  1. FUZEON [Suspect]
     Indication: HIV INFECTION
     Dosage: 90 MG 2 PER DAY SUBCUTANEOUS
     Route: 058
     Dates: start: 20050411
  2. ANTIRETROVIRALS (ANTITRETROVIRALS) [Concomitant]
  3. METFORMIN HCL [Concomitant]
  4. DIFLUCAN [Concomitant]
  5. GABAPENTIN [Concomitant]

REACTIONS (3)
  - INJECTION SITE REACTION [None]
  - PNEUMONIA [None]
  - PYREXIA [None]
